FAERS Safety Report 9292795 (Version 3)
Quarter: 2013Q3

REPORT INFORMATION
  Report Type: Spontaneous
  Country: US (occurrence: None)
  Receive Date: 20130513
  Receipt Date: 20130913
  Transmission Date: 20140515
  Serious: Yes (Life-Threatening, Other)
  Sender: FDA-Public Use
  Company Number: ACO_35894_2013

PATIENT
  Age: 50 Year
  Sex: Female

DRUGS (5)
  1. AMPYRA [Suspect]
     Indication: GAIT DISTURBANCE
     Route: 048
     Dates: start: 201108, end: 2012
  2. NORVASC [Concomitant]
  3. VITAMIN D3 [Concomitant]
  4. VESICARE [Concomitant]
  5. VITAMIN B12 [Concomitant]

REACTIONS (5)
  - Drug intolerance [None]
  - Adverse drug reaction [None]
  - Presyncope [None]
  - Dizziness [None]
  - Asthenia [None]
